FAERS Safety Report 7196941-5 (Version None)
Quarter: 2010Q4

REPORT INFORMATION
  Report Type: 
  Country: None (occurrence: None)
  Receive Date: 20101224
  Receipt Date: 20101215
  Transmission Date: 20110411
  Serious: Yes (Death)
  Sender: FDA-Public Use
  Company Number: US-BIOGENIDEC-2010BI043917

PATIENT
  Age: 41 Year
  Sex: Male

DRUGS (2)
  1. TYSABRI [Suspect]
     Indication: MULTIPLE SCLEROSIS
     Route: 042
     Dates: start: 20100607, end: 20101122
  2. INSULIN [Concomitant]
     Indication: DIABETES MELLITUS

REACTIONS (2)
  - COMPLETED SUICIDE [None]
  - MAJOR DEPRESSION [None]
